FAERS Safety Report 16625029 (Version 3)
Quarter: 2019Q3

REPORT INFORMATION
  Report Type: Spontaneous
  Country: US (occurrence: US)
  Receive Date: 20190724
  Receipt Date: 20190807
  Transmission Date: 20191004
  Serious: Yes (Death, Hospitalization)
  Sender: FDA-Public Use
  Company Number: US-PFIZER INC-2019309501

PATIENT
  Age: 75 Year
  Sex: Male

DRUGS (2)
  1. GEMCITABINE HYDROCHLORIDE. [Suspect]
     Active Substance: GEMCITABINE HYDROCHLORIDE
     Indication: DUCTAL ADENOCARCINOMA OF PANCREAS
     Dosage: 1000 MG/M2, CYCLIC (AS 1,862 MG ON DAY 1, 8, AND 15 ON A 28-DAY CYCLE FOR 6 CYCLES)
  2. CAPECITABINE. [Concomitant]
     Active Substance: CAPECITABINE
     Indication: DUCTAL ADENOCARCINOMA OF PANCREAS
     Dosage: 620 MG/M2, CYCLIC (AS 1,150 MG BID ON DAYS 1-21)
     Route: 048

REACTIONS (4)
  - Pneumonia [Fatal]
  - Diffuse alveolar damage [Fatal]
  - Pulmonary toxicity [Fatal]
  - Pulmonary congestion [Fatal]
